FAERS Safety Report 17363449 (Version 2)
Quarter: 2020Q2

REPORT INFORMATION
  Report Type: Spontaneous
  Country: RU (occurrence: RU)
  Receive Date: 20200203
  Receipt Date: 20200406
  Transmission Date: 20200713
  Serious: Yes (Other)
  Sender: FDA-Public Use
  Company Number: RU-INSUD PHARMA-2001RU00014

PATIENT

DRUGS (2)
  1. SYEDA [Suspect]
     Active Substance: DROSPIRENONE\ETHINYL ESTRADIOL
     Indication: PREMENSTRUAL SYNDROME
     Dosage: UNK
     Route: 048
  2. SYEDA [Suspect]
     Active Substance: DROSPIRENONE\ETHINYL ESTRADIOL
     Indication: DYSMENORRHOEA

REACTIONS (5)
  - Intentional product use issue [Unknown]
  - Palpitations [Unknown]
  - Hyperlipidaemia [Unknown]
  - Atrioventricular block second degree [Unknown]
  - Headache [Unknown]

NARRATIVE: CASE EVENT DATE: 2016
